FAERS Safety Report 7771977-1 (Version None)
Quarter: 2011Q3

REPORT INFORMATION
  Report Type: 
  Country: None (occurrence: None)
  Receive Date: 20110922
  Receipt Date: 20100813
  Transmission Date: 20111222
  Serious: No
  Sender: FDA-Public Use
  Company Number: US-ASTRAZENECA-2010SE31431

PATIENT
  Age: 677 Month
  Sex: Female
  Weight: 90.7 kg

DRUGS (9)
  1. CRESTOR [Suspect]
     Route: 048
  2. PREMARIN [Concomitant]
  3. DEPAKOTE [Concomitant]
  4. SEROQUEL XR [Suspect]
     Route: 048
  5. INDERAL [Concomitant]
  6. SEROQUEL XR [Suspect]
     Route: 048
  7. SEROQUEL XR [Suspect]
     Indication: BIPOLAR DISORDER
     Route: 048
     Dates: start: 20100630
  8. CRESTOR [Suspect]
     Indication: HYPERCHOLESTEROLAEMIA
     Route: 048
  9. SYNTHROID [Concomitant]

REACTIONS (11)
  - DECREASED APPETITE [None]
  - WEIGHT INCREASED [None]
  - TREATMENT NONCOMPLIANCE [None]
  - AGGRESSION [None]
  - DRUG DOSE OMISSION [None]
  - THIRST [None]
  - PANIC ATTACK [None]
  - HYPERSOMNIA [None]
  - INCREASED APPETITE [None]
  - IMPAIRED DRIVING ABILITY [None]
  - SEDATION [None]
